FAERS Safety Report 14317425 (Version 2)
Quarter: 2018Q2

REPORT INFORMATION
  Report Type: Report from Study
  Country: None (occurrence: CA)
  Receive Date: 20171222
  Receipt Date: 20180403
  Transmission Date: 20180711
  Serious: Yes (Other)
  Sender: FDA-Public Use
  Company Number: CA-ABBVIE-17S-028-2199628-00

PATIENT
  Sex: Female
  Weight: 56.5 kg

DRUGS (2)
  1. LUPRON DEPOT [Suspect]
     Active Substance: LEUPROLIDE ACETATE
     Indication: ENDOMETRIOSIS
     Route: 030
  2. LUPRON DEPOT [Suspect]
     Active Substance: LEUPROLIDE ACETATE
     Route: 050

REACTIONS (7)
  - Urinary incontinence [Recovered/Resolved]
  - Uterine leiomyoma [Unknown]
  - Post procedural complication [Not Recovered/Not Resolved]
  - Hysterosalpingo-oophorectomy [Not Recovered/Not Resolved]
  - Nasopharyngitis [Unknown]
  - Micturition urgency [Not Recovered/Not Resolved]
  - Ovarian cyst [Not Recovered/Not Resolved]

NARRATIVE: CASE EVENT DATE: 2007
